FAERS Safety Report 23203890 (Version 1)
Quarter: 2023Q4

REPORT INFORMATION
  Report Type: Spontaneous
  Country: US (occurrence: None)
  Receive Date: 20231120
  Receipt Date: 20231120
  Transmission Date: 20240110
  Serious: No
  Sender: FDA-Public Use
  Company Number: None

PATIENT
  Age: 64 Year
  Sex: Female

DRUGS (5)
  1. HUMIRA [Suspect]
     Active Substance: ADALIMUMAB
     Indication: Rheumatoid arthritis
     Dosage: 40 MG EVERY 2 WEEKS SUBCUTANEOUS
     Route: 058
     Dates: start: 20220418
  2. ATORVASTATIN [Concomitant]
     Active Substance: ATORVASTATIN
  3. Calcium 600mg [Concomitant]
  4. Fish Oil 1000mg [Concomitant]
  5. MELOXICAM [Concomitant]
     Active Substance: MELOXICAM

REACTIONS (2)
  - Nasopharyngitis [None]
  - Therapy interrupted [None]

NARRATIVE: CASE EVENT DATE: 20231108
